FAERS Safety Report 5309584-2 (Version None)
Quarter: 2007Q2

REPORT INFORMATION
  Report Type: 
  Country: None (occurrence: None)
  Receive Date: 20070425
  Receipt Date: 20070425
  Transmission Date: 20071010
  Serious: Yes (Hospitalization, Other)
  Sender: FDA-Public Use
  Company Number: None

PATIENT
  Age: 62 Year

DRUGS (18)
  1. FLUCONAZOLE [Suspect]
     Dosage: PO
     Route: 048
  2. SIMVASTATIN [Suspect]
     Dosage: PO
     Route: 048
     Dates: end: 20070306
  3. GEMFIBROZIL [Suspect]
  4. ASPIRIN [Concomitant]
  5. M.V.I. [Concomitant]
  6. DIGOXIN [Concomitant]
  7. DOCUSATE [Concomitant]
  8. HYDROCORTISONE [Concomitant]
  9. FLUDROCORTISONE ACETATE [Concomitant]
  10. GLIPIZIDE [Concomitant]
  11. INSULIN [Concomitant]
  12. ISOSORBIDE MONONITRATE [Concomitant]
  13. METOPROLOL SUCCINATE [Concomitant]
  14. NTG SL [Concomitant]
  15. TRAMADOL HCL [Concomitant]
  16. WARFARIN [Concomitant]
  17. ACETAMINOPHEN [Concomitant]
  18. POTASSIUM ACETATE [Concomitant]

REACTIONS (3)
  - NAUSEA [None]
  - RHABDOMYOLYSIS [None]
  - VOMITING [None]
